FAERS Safety Report 5957030-8 (Version None)
Quarter: 2008Q4

REPORT INFORMATION
  Report Type: 
  Country: None (occurrence: None)
  Receive Date: 20081118
  Receipt Date: 20080922
  Transmission Date: 20090506
  Serious: No
  Sender: FDA-Public Use
  Company Number: A0748841A

PATIENT
  Age: 84 Year
  Sex: Male

DRUGS (1)
  1. COREG CR [Suspect]
     Dosage: 10MG PER DAY
     Route: 048
     Dates: start: 20080701, end: 20080908

REACTIONS (1)
  - PERIPHERAL COLDNESS [None]
